FAERS Safety Report 9424579 (Version 1)
Quarter: 2013Q3

REPORT INFORMATION
  Report Type: Spontaneous
  Country: US (occurrence: None)
  Receive Date: 20130726
  Receipt Date: 20130726
  Transmission Date: 20140515
  Serious: No
  Sender: FDA-Public Use
  Company Number: None

PATIENT
  Sex: Female
  Weight: 62.87 kg

DRUGS (1)
  1. VIIBRYD [Suspect]
     Indication: DEPRESSION
     Route: 048
     Dates: start: 20100222, end: 20130701

REACTIONS (7)
  - Drug dose omission [None]
  - Sleep terror [None]
  - Anxiety [None]
  - Pruritus [None]
  - Paraesthesia [None]
  - Dizziness [None]
  - Presyncope [None]
